FAERS Safety Report 12376285 (Version 1)
Quarter: 2016Q2

REPORT INFORMATION
  Report Type: Spontaneous
  Country: DE (occurrence: DE)
  Receive Date: 20160517
  Receipt Date: 20160517
  Transmission Date: 20160815
  Serious: Yes (Other)
  Sender: FDA-Public Use
  Company Number: GXKR2016DE002310

PATIENT

DRUGS (7)
  1. UTROGEST [Concomitant]
     Active Substance: PROGESTERONE
     Indication: CERVICAL INCOMPETENCE
     Dosage: 200 [MG/D (0-0-0-200) ]
     Route: 065
     Dates: start: 20150516, end: 20150516
  2. CELESTAN [Concomitant]
     Active Substance: BETAMETHASONE
     Indication: MATERNAL THERAPY TO ENHANCE FOETAL LUNG MATURITY
     Dosage: 12 [MG/D ]
     Route: 030
     Dates: start: 20150509, end: 20150510
  3. MAGNESIUM [Concomitant]
     Active Substance: MAGNESIUM
     Indication: CERVICAL INCOMPETENCE
     Route: 048
     Dates: start: 20150516, end: 20150516
  4. FOLIO FORTE [Concomitant]
     Active Substance: FOLIC ACID\VITAMINS
     Indication: PROPHYLAXIS OF NEURAL TUBE DEFECT
     Dosage: 0.8 [MG/D ] (GW 5 TO 38.3)
     Route: 048
  5. AMOXICILLIN. [Concomitant]
     Active Substance: AMOXICILLIN
     Indication: CYSTITIS
     Route: 048
     Dates: start: 20141229, end: 20150102
  6. CITALOPRAM [Suspect]
     Active Substance: CITALOPRAM HYDROBROMIDE
     Indication: DEPRESSION
     Dosage: 20 [MG/D ]
     Route: 048
     Dates: start: 20150509, end: 20150512
  7. CLONT [Concomitant]
     Indication: GARDNERELLA TEST POSITIVE
     Dosage: 2 [G/D ]
     Route: 048
     Dates: start: 20150509, end: 20150516

REACTIONS (1)
  - Foetal hypokinesia [Recovered/Resolved]
